FAERS Safety Report 4333120-0 (Version None)
Quarter: 2004Q2

REPORT INFORMATION
  Report Type: 
  Country: None (occurrence: None)
  Receive Date: 20040405
  Receipt Date: 20040405
  Transmission Date: 20050107
  Serious: Yes (Hospitalization)
  Sender: FDA-Public Use
  Company Number: None

PATIENT
  Sex: Female
  Weight: 83.9154 kg

DRUGS (1)
  1. DEPO-PROVERA [Suspect]
     Indication: CONTRACEPTION
     Dosage: ONCE
     Dates: start: 20030514, end: 20030514

REACTIONS (6)
  - ALOPECIA [None]
  - DEPRESSION [None]
  - LOSS OF LIBIDO [None]
  - SEXUAL DYSFUNCTION [None]
  - VAGINAL HAEMORRHAGE [None]
  - WEIGHT INCREASED [None]
